FAERS Safety Report 21865159 (Version 1)
Quarter: 2023Q1

REPORT INFORMATION
  Report Type: Report from Study
  Country: US (occurrence: US)
  Receive Date: 20230116
  Receipt Date: 20230116
  Transmission Date: 20230418
  Serious: No
  Sender: FDA-Public Use
  Company Number: US-ABBVIE-22K-163-4420460-00

PATIENT
  Sex: Female

DRUGS (3)
  1. HUMIRA [Suspect]
     Active Substance: ADALIMUMAB
     Indication: Hidradenitis
     Dosage: STRENGTH- 80 MG
     Route: 058
  2. HUMIRA [Suspect]
     Active Substance: ADALIMUMAB
     Dosage: DAY 15,STRENGTH- 80 MG
     Route: 058
     Dates: start: 20211222, end: 20211222
  3. HUMIRA [Suspect]
     Active Substance: ADALIMUMAB
     Dosage: DAY 1, STRENGTH- 80 MG
     Route: 058
     Dates: start: 20211208, end: 20211208

REACTIONS (9)
  - Self-consciousness [Not Recovered/Not Resolved]
  - Pruritus [Unknown]
  - Skin discolouration [Unknown]
  - Pruritus [Unknown]
  - Rash [Unknown]
  - Pain of skin [Not Recovered/Not Resolved]
  - Hidradenitis [Unknown]
  - Abscess [Unknown]
  - Impaired healing [Unknown]

NARRATIVE: CASE EVENT DATE: 20220101
